FAERS Safety Report 23024307 (Version 2)
Quarter: 2023Q4

REPORT INFORMATION
  Report Type: Spontaneous
  Country: US (occurrence: US)
  Receive Date: 20231004
  Receipt Date: 20231009
  Transmission Date: 20240109
  Serious: Yes (Life-Threatening, Hospitalization, Other)
  Sender: FDA-Public Use
  Company Number: US-MLMSERVICE-20230918-4550180-1

PATIENT
  Age: 18 Year
  Sex: Female

DRUGS (1)
  1. ACETAMINOPHEN [Suspect]
     Active Substance: ACETAMINOPHEN
     Indication: Product used for unknown indication
     Dosage: UNK(?35 G)
     Route: 048

REACTIONS (12)
  - Acute hepatic failure [Recovering/Resolving]
  - Acute kidney injury [Recovered/Resolved]
  - Acidosis [Recovering/Resolving]
  - Coagulopathy [Recovering/Resolving]
  - Hepatic encephalopathy [Recovering/Resolving]
  - Hepatic necrosis [Recovering/Resolving]
  - Hypothermia [Recovering/Resolving]
  - Shock [Recovering/Resolving]
  - Varices oesophageal [Recovered/Resolved]
  - Intentional overdose [Recovering/Resolving]
  - Pancreatitis [Recovering/Resolving]
  - Ascites [Recovered/Resolved]
